FAERS Safety Report 9833102 (Version 2)
Quarter: 2014Q2

REPORT INFORMATION
  Report Type: Spontaneous
  Country: CL (occurrence: CL)
  Receive Date: 20140121
  Receipt Date: 20140630
  Transmission Date: 20141212
  Serious: Yes (Other)
  Sender: FDA-Public Use
  Company Number: CL-PFIZER INC-2014016740

PATIENT
  Age: 62 Year
  Sex: Female

DRUGS (4)
  1. CHAMPIX [Suspect]
     Indication: SMOKING CESSATION THERAPY
     Dosage: UNK
     Route: 048
     Dates: start: 20131227, end: 20140109
  2. SERTRALINE [Concomitant]
     Dosage: 50 MG, 1X/DAY
  3. GLUCOSAMINE [Concomitant]
     Dosage: 1 DF, 1X/DAY
     Dates: start: 2010
  4. CLONAZEPAM [Concomitant]
     Dosage: UNK
     Dates: start: 201306

REACTIONS (5)
  - Toxicity to various agents [Recovering/Resolving]
  - Depression [Not Recovered/Not Resolved]
  - Pleuritic pain [Recovering/Resolving]
  - Diarrhoea [Recovering/Resolving]
  - Malaise [Recovering/Resolving]
